FAERS Safety Report 14543852 (Version 1)
Quarter: 2018Q1

REPORT INFORMATION
  Report Type: Spontaneous
  Country: US (occurrence: US)
  Receive Date: 20180216
  Receipt Date: 20180216
  Transmission Date: 20180509
  Serious: Yes (Other)
  Sender: FDA-Public Use
  Company Number: US-THE PROACTIV LLC-2042183

PATIENT
  Age: 6 Year
  Sex: Female

DRUGS (4)
  1. PROACTIV GREEN TEA MOISTURIZER [Suspect]
     Active Substance: COSMETICS
     Route: 061
     Dates: start: 20180207, end: 20180207
  2. PROACTIV REVITALIZING TONER COMBINATION THERAPY ACNE TREATMENT [Suspect]
     Active Substance: SALICYLIC ACID
     Route: 061
     Dates: start: 20180207, end: 20180207
  3. PROACTIV SOLUTION RENEWING CLEANSER [Suspect]
     Active Substance: BENZOYL PEROXIDE
     Route: 061
     Dates: start: 20180207, end: 20180207
  4. PROACTIV REPAIRING TREATMENT [Suspect]
     Active Substance: BENZOYL PEROXIDE
     Route: 061
     Dates: start: 20180207, end: 20180207

REACTIONS (2)
  - Accidental exposure to product by child [Recovering/Resolving]
  - Swelling face [Recovering/Resolving]

NARRATIVE: CASE EVENT DATE: 20180207
